APPROVED DRUG PRODUCT: PHENTERMINE HYDROCHLORIDE
Active Ingredient: PHENTERMINE HYDROCHLORIDE
Strength: 30MG
Dosage Form/Route: CAPSULE;ORAL
Application: A205019 | Product #002 | TE Code: AA
Applicant: NUVO PHARMACEUTICAL INC
Approved: Dec 5, 2014 | RLD: No | RS: No | Type: RX